FAERS Safety Report 18391283 (Version 1)
Quarter: 2020Q4

REPORT INFORMATION
  Report Type: Spontaneous
  Country: AU (occurrence: AU)
  Receive Date: 20201016
  Receipt Date: 20201016
  Transmission Date: 20210114
  Serious: Yes (Other)
  Sender: FDA-Public Use
  Company Number: AU-ACCORD-204873

PATIENT
  Age: 76 Year
  Sex: Female

DRUGS (5)
  1. EZETROL [Concomitant]
     Active Substance: EZETIMIBE
  2. DIOVAN [Concomitant]
     Active Substance: VALSARTAN
     Dosage: 80MG,DURATION OF TREATMENT: 6 TO 7 YEARS, DOSAGE: 1 TABLET A DAY
  3. ROSUVASTATIN APOTEX [Suspect]
     Active Substance: ROSUVASTATIN CALCIUM
     Indication: BLOOD CHOLESTEROL
     Dosage: 10MG, 1 TABLET 3 TIMES A WEEK MONDAY, WEDNESDAY AND FRIDAY,18 MONTHS AGO
  4. ZANIDIP [Concomitant]
     Active Substance: LERCANIDIPINE HYDROCHLORIDE
     Indication: BLOOD PRESSURE MEASUREMENT
     Dosage: 10MG,TO HALF A TABLET INSTEAD OF ONE TABLET, HALF AN HOUR BEFORE HER MEAL AT NIGHT
  5. SPIRACTIN [Concomitant]
     Dosage: 25MG (DOSAGE: HALF A TABLET IN THE MORNING).

REACTIONS (3)
  - Fatigue [Not Recovered/Not Resolved]
  - Asthenia [Not Recovered/Not Resolved]
  - Syncope [Not Recovered/Not Resolved]

NARRATIVE: CASE EVENT DATE: 20200930
